FAERS Safety Report 14230742 (Version 1)
Quarter: 2017Q4

REPORT INFORMATION
  Report Type: Spontaneous
  Country: AR (occurrence: AR)
  Receive Date: 20171128
  Receipt Date: 20171128
  Transmission Date: 20180321
  Serious: Yes (Hospitalization)
  Sender: FDA-Public Use
  Company Number: AR-PFIZER INC-2017506849

PATIENT
  Age: 62 Year
  Sex: Male

DRUGS (1)
  1. SUTENT [Suspect]
     Active Substance: SUNITINIB MALATE
     Indication: METASTATIC RENAL CELL CARCINOMA
     Dosage: UNK

REACTIONS (5)
  - Pyrexia [Unknown]
  - Infection [Unknown]
  - White blood cell count decreased [Unknown]
  - Decreased immune responsiveness [Unknown]
  - Gout [Unknown]

NARRATIVE: CASE EVENT DATE: 2012
